FAERS Safety Report 23188081 (Version 2)
Quarter: 2023Q4

REPORT INFORMATION
  Report Type: Spontaneous
  Country: US (occurrence: US)
  Receive Date: 20231115
  Receipt Date: 20231115
  Transmission Date: 20240109
  Serious: No
  Sender: FDA-Public Use
  Company Number: US-PFIZER INC-202300359238

PATIENT
  Sex: Female

DRUGS (1)
  1. ZALEPLON [Suspect]
     Active Substance: ZALEPLON
     Dosage: UNK

REACTIONS (1)
  - Drug effect less than expected [Unknown]
